FAERS Safety Report 8855390 (Version 1)
Quarter: 2012Q4

REPORT INFORMATION
  Report Type: 
  Country: US (occurrence: US)
  Receive Date: 20121023
  Receipt Date: 20121023
  Transmission Date: 20130627
  Serious: No
  Sender: FDA-Public Use
  Company Number: US-AMGEN-USASP2012053481

PATIENT
  Age: 54 Year
  Sex: Female
  Weight: 125.62 kg

DRUGS (1)
  1. ENBREL [Suspect]
     Indication: RHEUMATOID ARTHRITIS
     Dosage: 50 mg, qwk
     Dates: start: 20031001, end: 20120926

REACTIONS (11)
  - Rheumatoid arthritis [Recovered/Resolved]
  - Diarrhoea [Not Recovered/Not Resolved]
  - Overweight [Recovered/Resolved]
  - Calcinosis [Recovered/Resolved]
  - Foot deformity [Recovered/Resolved]
  - Hypoaesthesia [Recovered/Resolved]
  - Pain [Recovered/Resolved]
  - Metrorrhagia [Not Recovered/Not Resolved]
  - Gait disturbance [Recovered/Resolved]
  - Arthralgia [Recovered/Resolved]
  - Pain in extremity [Recovered/Resolved]
